FAERS Safety Report 5536633-9 (Version None)
Quarter: 2007Q4

REPORT INFORMATION
  Report Type: 
  Country: None (occurrence: None)
  Receive Date: 20071206
  Receipt Date: 20070802
  Transmission Date: 20080405
  Serious: Yes (Other)
  Sender: FDA-Public Use
  Company Number: US-AMGEN-STX237360

PATIENT
  Sex: Female

DRUGS (1)
  1. ENBREL [Suspect]
     Indication: RHEUMATOID ARTHRITIS
     Route: 058
     Dates: start: 20070615

REACTIONS (4)
  - ABDOMINAL PAIN [None]
  - HEADACHE [None]
  - INJECTION SITE BRUISING [None]
  - RECTAL HAEMORRHAGE [None]
